FAERS Safety Report 5104385-2 (Version None)
Quarter: 2006Q3

REPORT INFORMATION
  Report Type: 
  Country: None (occurrence: None)
  Receive Date: 20060908
  Receipt Date: 20060908
  Transmission Date: 20061208
  Serious: Yes (Disabling)
  Sender: FDA-Public Use
  Company Number: None

PATIENT
  Sex: Female
  Weight: 87.0906 kg

DRUGS (1)
  1. HURRICAINE  20%  -BENZOCAINE 20%-    BEUTLICH L.P. PHARMACEUTICALS [Suspect]
     Indication: GASTROINTESTINAL TUBE INSERTION
     Dosage: 20% SPRAY TO THROAT   PRN   TOP
     Route: 061
     Dates: start: 20060522, end: 20060524

REACTIONS (2)
  - ALKALOSIS [None]
  - METHAEMOGLOBINAEMIA [None]
